FAERS Safety Report 10387836 (Version 1)
Quarter: 2014Q3

REPORT INFORMATION
  Report Type: Spontaneous
  Country: US (occurrence: US)
  Receive Date: 20140815
  Receipt Date: 20140815
  Transmission Date: 20150326
  Serious: Yes (Hospitalization, Other)
  Sender: FDA-Public Use
  Company Number: US-009507513-1408USA001988

PATIENT
  Sex: Female

DRUGS (1)
  1. NUVARING [Suspect]
     Active Substance: ETHINYL ESTRADIOL\ETONOGESTREL
     Indication: CONTRACEPTION
     Dosage: UNK
     Route: 067
     Dates: start: 200412, end: 20050414

REACTIONS (9)
  - Haemoptysis [Unknown]
  - Cough [Unknown]
  - Muscle tightness [Recovered/Resolved]
  - Pericardial effusion [Unknown]
  - Pneumonia [Unknown]
  - Pulmonary infarction [Unknown]
  - Pulmonary arterial pressure increased [Unknown]
  - Pulmonary embolism [Unknown]
  - Atelectasis [Unknown]

NARRATIVE: CASE EVENT DATE: 200502
